FAERS Safety Report 6758611-4 (Version None)
Quarter: 2010Q2

REPORT INFORMATION
  Report Type: 
  Country: None (occurrence: None)
  Receive Date: 20100603
  Receipt Date: 20100517
  Transmission Date: 20101027
  Serious: Yes (Death, Other)
  Sender: FDA-Public Use
  Company Number: 20100220

PATIENT
  Age: 19 Year
  Sex: Female

DRUGS (3)
  1. DEHYDRATED ALCOHOL INJECTION, USP (8571-10) 99.50% [Suspect]
     Indication: HAEMANGIOMA
     Dosage: 13 ML INTRATUMOR
     Route: 036
  2. DEHYDRATED ALCOHOL INJECTION, USP (8571-10) 99.50% [Suspect]
     Indication: SCLEROTHERAPY
     Dosage: 13 ML INTRATUMOR
     Route: 036
  3. ANESTHESIA [Concomitant]

REACTIONS (4)
  - CEREBRAL HAEMORRHAGE [None]
  - HEART RATE INCREASED [None]
  - HYPOXIA [None]
  - RESPIRATORY RATE INCREASED [None]
